FAERS Safety Report 4809038-3 (Version None)
Quarter: 2005Q4

REPORT INFORMATION
  Report Type: 
  Country: None (occurrence: None)
  Receive Date: 20051025
  Receipt Date: 20051012
  Transmission Date: 20060501
  Serious: Yes (Hospitalization)
  Sender: FDA-Public Use
  Company Number: FR-NOVOPROD-247710

PATIENT
  Age: 71 Year
  Sex: Female

DRUGS (1)
  1. LEVEMIR [Suspect]
     Indication: ILL-DEFINED DISORDER
     Dates: start: 20050701, end: 20051012

REACTIONS (1)
  - CONSTIPATION [None]
